FAERS Safety Report 15135199 (Version 4)
Quarter: 2018Q3

REPORT INFORMATION
  Report Type: Spontaneous
  Country: DE (occurrence: DE)
  Receive Date: 20180712
  Receipt Date: 20180906
  Transmission Date: 20181010
  Serious: Yes (Hospitalization)
  Sender: FDA-Public Use
  Company Number: DE-GLAXOSMITHKLINE-DE2018119799

PATIENT
  Age: 28 Year
  Sex: Male

DRUGS (31)
  1. RISPERIDONE. [Suspect]
     Active Substance: RISPERIDONE
     Indication: SCHIZOPHRENIA
     Dosage: UNK
     Route: 065
  2. RISPERIDONE. [Suspect]
     Active Substance: RISPERIDONE
     Indication: ANTIDEPRESSANT THERAPY
  3. RISPERIDONE. [Suspect]
     Active Substance: RISPERIDONE
     Indication: PSYCHOTIC DISORDER
  4. BUPROPION. [Suspect]
     Active Substance: BUPROPION
     Indication: ANTIDEPRESSANT THERAPY
     Dosage: UNK
     Route: 065
  5. CLOZAPINE. [Suspect]
     Active Substance: CLOZAPINE
     Indication: MYOCLONUS
  6. FLUOXETINE [Suspect]
     Active Substance: FLUOXETINE HYDROCHLORIDE
     Indication: ANTIDEPRESSANT THERAPY
     Dosage: UNK
     Route: 065
  7. BRIVARACETAM [Concomitant]
     Active Substance: BRIVARACETAM
     Indication: MYOCLONUS
     Dosage: UNK
     Route: 065
  8. AMISULPRIDE [Suspect]
     Active Substance: AMISULPRIDE
     Indication: SCHIZOPHRENIA
     Dosage: UNK
     Route: 065
  9. ESCITALOPRAM [Suspect]
     Active Substance: ESCITALOPRAM OXALATE
     Indication: PRODUCT USED FOR UNKNOWN INDICATION
     Dosage: 20 MG, UNK
     Route: 065
  10. FLUOXETINE [Suspect]
     Active Substance: FLUOXETINE HYDROCHLORIDE
     Indication: MYOCLONUS
  11. CLOBAZAM [Concomitant]
     Active Substance: CLOBAZAM
     Indication: MYOCLONUS
     Dosage: UP TO 20MG
     Route: 065
  12. OXAZEPAM. [Suspect]
     Active Substance: OXAZEPAM
     Indication: MYOCLONUS
  13. VENLAFAXINE [Suspect]
     Active Substance: VENLAFAXINE HYDROCHLORIDE
     Indication: ANTIDEPRESSANT THERAPY
     Dosage: UNK
     Route: 065
  14. DULOXETINE. [Suspect]
     Active Substance: DULOXETINE
     Indication: ANTIDEPRESSANT THERAPY
     Dosage: UNK
     Route: 065
  15. ESCITALOPRAM [Suspect]
     Active Substance: ESCITALOPRAM OXALATE
     Indication: ANTIDEPRESSANT THERAPY
  16. BIPERIDEN [Suspect]
     Active Substance: BIPERIDEN
     Indication: PRODUCT USED FOR UNKNOWN INDICATION
     Dosage: UNK
     Route: 065
  17. OXCARBAZEPINE. [Concomitant]
     Active Substance: OXCARBAZEPINE
     Indication: MYOCLONUS
     Dosage: UNK
     Route: 065
  18. CARBAMAZEPINE. [Concomitant]
     Active Substance: CARBAMAZEPINE
     Indication: MYOCLONUS
     Dosage: UNK
     Route: 065
  19. QUETIAPINE. [Suspect]
     Active Substance: QUETIAPINE
     Indication: ANTIDEPRESSANT THERAPY
  20. ZOPICLONE [Suspect]
     Active Substance: ZOPICLONE
     Indication: PRODUCT USED FOR UNKNOWN INDICATION
     Dosage: UNK
     Route: 065
  21. MIRTAZAPINE. [Suspect]
     Active Substance: MIRTAZAPINE
     Indication: ANTIDEPRESSANT THERAPY
     Dosage: UNK
     Route: 065
  22. ZONISAMIDE. [Concomitant]
     Active Substance: ZONISAMIDE
     Indication: MYOCLONUS
     Dosage: UP TO 100MG
     Route: 065
  23. PROMETHAZINE [Suspect]
     Active Substance: PROMETHAZINE\PROMETHAZINE HYDROCHLORIDE
     Indication: ANTIDEPRESSANT THERAPY
     Dosage: UNK
     Route: 065
  24. BIPERIDEN [Suspect]
     Active Substance: BIPERIDEN
     Indication: DYSKINESIA
  25. CLOZAPINE. [Suspect]
     Active Substance: CLOZAPINE
     Indication: PRODUCT USED FOR UNKNOWN INDICATION
     Dosage: 75 MG, UNK
     Route: 065
  26. ARIPIPRAZOLE. [Suspect]
     Active Substance: ARIPIPRAZOLE
     Indication: SCHIZOPHRENIA
     Dosage: UNK
     Route: 065
  27. ARIPIPRAZOLE. [Suspect]
     Active Substance: ARIPIPRAZOLE
     Indication: ANTIDEPRESSANT THERAPY
  28. QUETIAPINE. [Suspect]
     Active Substance: QUETIAPINE
     Indication: SCHIZOPHRENIA
     Dosage: UNK
     Route: 065
  29. OXAZEPAM. [Suspect]
     Active Substance: OXAZEPAM
     Indication: PRODUCT USED FOR UNKNOWN INDICATION
     Dosage: UNK
     Route: 065
  30. OLANZAPINE. [Suspect]
     Active Substance: OLANZAPINE
     Indication: ANTIDEPRESSANT THERAPY
     Dosage: UNK
     Route: 065
  31. AMISULPRIDE [Suspect]
     Active Substance: AMISULPRIDE
     Indication: ANTIDEPRESSANT THERAPY

REACTIONS (5)
  - Condition aggravated [Recovering/Resolving]
  - Dyskinesia [Unknown]
  - Myoclonus [Recovered/Resolved]
  - Drug intolerance [Unknown]
  - Drug ineffective [Unknown]
